FAERS Safety Report 20821426 (Version 1)
Quarter: 2022Q2

REPORT INFORMATION
  Report Type: Spontaneous
  Country: US (occurrence: US)
  Receive Date: 20220512
  Receipt Date: 20220512
  Transmission Date: 20220720
  Serious: No
  Sender: FDA-Public Use
  Company Number: US-BAYER-2022A065511

PATIENT
  Age: 74 Year
  Sex: Female
  Weight: 53.5 kg

DRUGS (7)
  1. CLARITIN-D 24 HOUR [Suspect]
     Active Substance: LORATADINE\PSEUDOEPHEDRINE SULFATE
     Indication: Seasonal allergy
     Dosage: TABLET/CAPLET/GELCAP
     Route: 048
  2. CLARITIN-D 24 HOUR [Suspect]
     Active Substance: LORATADINE\PSEUDOEPHEDRINE SULFATE
     Indication: Hypersensitivity
  3. TREPROSTINIL SODIUM [Concomitant]
     Active Substance: TREPROSTINIL SODIUM
     Indication: Pulmonary arterial hypertension
     Dosage: 0.6 MG/ML, 18-54 ?G, QID, INHALATION
     Dates: start: 20201014
  4. REVATIO [Concomitant]
     Active Substance: SILDENAFIL CITRATE
  5. AMBRISENTAN [Concomitant]
     Active Substance: AMBRISENTAN
  6. FLONASE ALLERGY RELIEF [Concomitant]
     Active Substance: FLUTICASONE PROPIONATE
  7. TIZANIDINE [Concomitant]
     Active Substance: TIZANIDINE
     Indication: Insomnia

REACTIONS (1)
  - Therapeutic product ineffective [None]
